FAERS Safety Report 6603419-3 (Version None)
Quarter: 2010Q1

REPORT INFORMATION
  Report Type: 
  Country: None (occurrence: None)
  Receive Date: 20100226
  Receipt Date: 20090505
  Transmission Date: 20100710
  Serious: No
  Sender: FDA-Public Use
  Company Number: A0782562A

PATIENT
  Sex: Female

DRUGS (3)
  1. VALTREX [Suspect]
     Indication: HERPES ZOSTER
     Dosage: 1000MG UNKNOWN
     Route: 048
  2. NO CONCURRENT MEDICATION [Concomitant]
  3. ACYCLOVIR [Concomitant]
     Indication: HERPES ZOSTER

REACTIONS (1)
  - ALOPECIA [None]
